FAERS Safety Report 18146261 (Version 2)
Quarter: 2020Q4

REPORT INFORMATION
  Report Type: Report from Study
  Country: DE (occurrence: DE)
  Receive Date: 20200813
  Receipt Date: 20201021
  Transmission Date: 20210113
  Serious: Yes (Life-Threatening)
  Sender: FDA-Public Use
  Company Number: DE-ROCHE-2658102

PATIENT
  Age: 73 Year
  Sex: Male
  Weight: 115 kg

DRUGS (7)
  1. ATEZOLIZUMAB. [Suspect]
     Active Substance: ATEZOLIZUMAB
     Indication: GASTRIC CANCER
     Dosage: ON 10/JUL/2020, LAST DOSE OF ATEZOLIZUMAB WAS ADMINISTERED PRIOR TO SAE.
     Route: 041
  2. LEUCOVORIN. [Suspect]
     Active Substance: LEUCOVORIN
     Indication: GASTRIC CANCER
     Dosage: ON 29/JUL/2020, LAST DOSE OF LEUCOVORIN WAS ADMINISTERED PRIOR TO SAE.
     Route: 065
  3. ALOXI [Concomitant]
     Active Substance: PALONOSETRON HYDROCHLORIDE
  4. DOCETAXEL. [Suspect]
     Active Substance: DOCETAXEL
     Indication: GASTRIC CANCER
     Dosage: ON 29/JUL/2020, LAST DOSE OF DOCETAXEL WAS ADMINISTERED PRIOR TO SAE.
     Route: 065
  5. FENISTIL [Concomitant]
     Active Substance: DIMETHINDENE
  6. FLUOROURACIL. [Suspect]
     Active Substance: FLUOROURACIL
     Indication: GASTRIC CANCER
     Dosage: ON 29/JUL/2020, LAST DOSE OF 5-FU WAS ADMINISTERED PRIOR TO SAE.
     Route: 065
  7. OXALIPLATIN. [Suspect]
     Active Substance: OXALIPLATIN
     Indication: GASTRIC CANCER
     Dosage: ON 29/JUL/2020, LAST DOSE OF OXALIPLATIN WAS ADMINISTERED PRIOR TO SAE.
     Route: 065

REACTIONS (2)
  - Dermatitis allergic [Recovered/Resolved]
  - Immune system disorder [Recovered/Resolved]

NARRATIVE: CASE EVENT DATE: 20200810
